FAERS Safety Report 24109417 (Version 1)
Quarter: 2024Q3

REPORT INFORMATION
  Report Type: Report from Study
  Country: US (occurrence: US)
  Receive Date: 20240718
  Receipt Date: 20240718
  Transmission Date: 20241017
  Serious: Yes (Hospitalization)
  Sender: MYLAN
  Company Number: US-MYLANLABS-2024M1066755

PATIENT
  Age: 7 Year
  Sex: Male

DRUGS (3)
  1. DEXMEDETOMIDINE [Suspect]
     Active Substance: DEXMEDETOMIDINE
     Indication: Procedural anxiety
     Dosage: 4 MICROGRAM/KILOGRAM
     Route: 045
  2. DEXMEDETOMIDINE [Suspect]
     Active Substance: DEXMEDETOMIDINE
     Indication: Prophylaxis
  3. KETAMINE [Suspect]
     Active Substance: KETAMINE
     Indication: Sedative therapy
     Dosage: 0.46 MILLIGRAM/KILOGRAM
     Route: 042

REACTIONS (3)
  - Bradycardia [Recovered/Resolved]
  - Respiratory depression [Recovered/Resolved]
  - Off label use [Unknown]
